FAERS Safety Report 15201483 (Version 1)
Quarter: 2018Q3

REPORT INFORMATION
  Report Type: Spontaneous
  Country: HR (occurrence: HR)
  Receive Date: 20180726
  Receipt Date: 20180726
  Transmission Date: 20181010
  Serious: Yes (Other)
  Sender: FDA-Public Use
  Company Number: HR-BIOVITRUM-2018HR0878

PATIENT
  Age: 48 Year
  Sex: Female

DRUGS (7)
  1. KINERET [Suspect]
     Active Substance: ANAKINRA
     Indication: AUTOINFLAMMATORY DISEASE
     Route: 058
     Dates: start: 20151109, end: 20180709
  2. METHYLPREDNISOLONE. [Concomitant]
     Active Substance: METHYLPREDNISOLONE
     Indication: AUTOINFLAMMATORY DISEASE
     Route: 048
  3. CALIXTA [Concomitant]
     Active Substance: MIRTAZAPINE
     Indication: ANXIETY DISORDER
     Route: 048
  4. LUPOCET [Concomitant]
     Indication: AUTOINFLAMMATORY DISEASE
     Route: 048
  5. ESOMEPRAZOLE MAGNESIUM. [Concomitant]
     Active Substance: ESOMEPRAZOLE MAGNESIUM
     Indication: PROPHYLAXIS
     Route: 048
  6. LEXAURIN [Concomitant]
     Active Substance: BROMAZEPAM
     Indication: ANXIETY DISORDER
     Route: 048
     Dates: start: 20160109
  7. DICLO DUO [Concomitant]
     Active Substance: DICLOFENAC SODIUM
     Indication: AUTOINFLAMMATORY DISEASE
     Route: 048

REACTIONS (2)
  - Condition aggravated [Recovered/Resolved with Sequelae]
  - Drug ineffective for unapproved indication [Recovered/Resolved with Sequelae]

NARRATIVE: CASE EVENT DATE: 20180109
